FAERS Safety Report 7378173-0 (Version None)
Quarter: 2011Q1

REPORT INFORMATION
  Report Type: 
  Country: None (occurrence: None)
  Receive Date: 20110328
  Receipt Date: 20110316
  Transmission Date: 20110831
  Serious: Yes (Hospitalization)
  Sender: FDA-Public Use
  Company Number: A0751430A

PATIENT
  Age: 38 Year
  Sex: Female
  Weight: 108.2 kg

DRUGS (13)
  1. AVANDARYL [Suspect]
     Route: 048
     Dates: start: 20060101, end: 20060101
  2. AMARYL [Concomitant]
  3. METOPROLOL SUCCINATE [Concomitant]
  4. SKELAXIN [Concomitant]
  5. LIPITOR [Concomitant]
  6. PERCOCET [Concomitant]
  7. PAXIL [Concomitant]
  8. LYRICA [Concomitant]
  9. INSULIN [Concomitant]
  10. METFORMIN [Concomitant]
  11. DIOVAN HCT [Concomitant]
  12. AVANDIA [Suspect]
     Dosage: 4MG TWICE PER DAY
     Route: 048
     Dates: start: 20010405, end: 20070605
  13. PREVACID [Concomitant]

REACTIONS (2)
  - MYOCARDIAL INFARCTION [None]
  - THROMBOSIS [None]
